FAERS Safety Report 19907699 (Version 4)
Quarter: 2021Q4

REPORT INFORMATION
  Report Type: Report from Study
  Country: CA (occurrence: CA)
  Receive Date: 20210930
  Receipt Date: 20211102
  Transmission Date: 20220303
  Serious: Yes (Hospitalization, Other)
  Sender: FDA-Public Use
  Company Number: CA-TAKEDA-2021TUS053476

PATIENT
  Age: 28 Year
  Sex: Female

DRUGS (7)
  1. VEDOLIZUMAB [Suspect]
     Active Substance: VEDOLIZUMAB
     Indication: Colitis ulcerative
     Dosage: 300 MILLIGRAM
     Route: 042
     Dates: start: 20210723
  2. VEDOLIZUMAB [Suspect]
     Active Substance: VEDOLIZUMAB
     Dosage: 300 MILLIGRAM
     Route: 042
  3. VEDOLIZUMAB [Suspect]
     Active Substance: VEDOLIZUMAB
     Dosage: 300 MILLIGRAM
     Route: 042
     Dates: end: 20210930
  4. IMURAN [Suspect]
     Active Substance: AZATHIOPRINE
     Indication: Product used for unknown indication
     Dosage: 100 MILLIGRAM
     Route: 065
     Dates: start: 202104, end: 20210817
  5. VITAMIN D NOS [Concomitant]
     Active Substance: VITAMIN D NOS
     Dosage: UNK
  6. CALCIUM [Concomitant]
     Active Substance: CALCIUM
     Dosage: UNK
  7. CORTISONE [Concomitant]
     Active Substance: CORTISONE
     Dosage: UNK

REACTIONS (18)
  - Colitis ulcerative [Unknown]
  - Haematochezia [Unknown]
  - Peripheral swelling [Unknown]
  - Limb mass [Unknown]
  - Photosensitivity reaction [Unknown]
  - Asthenia [Unknown]
  - Weight decreased [Unknown]
  - Abdominal pain [Unknown]
  - Diarrhoea [Unknown]
  - Frequent bowel movements [Unknown]
  - Rash erythematous [Unknown]
  - Muscle spasms [Unknown]
  - Erythema [Unknown]
  - Abdominal distension [Unknown]
  - Nausea [Unknown]
  - Pruritus [Unknown]
  - Fatigue [Unknown]
  - Drug ineffective [Unknown]
